FAERS Safety Report 7450966-0 (Version None)
Quarter: 2011Q2

REPORT INFORMATION
  Report Type: 
  Country: None (occurrence: None)
  Receive Date: 20110422
  Receipt Date: 20110415
  Transmission Date: 20111010
  Serious: Yes (Other)
  Sender: FDA-Public Use
  Company Number: 2011SP006819

PATIENT
  Age: 34 Year
  Sex: Male

DRUGS (6)
  1. ETIZOLAM [Concomitant]
  2. MEILAX [Concomitant]
  3. PAROXETINE HYDROCHLORIDE [Concomitant]
  4. ETHYL LOFLAZEPATE [Concomitant]
  5. ZOLOFT [Concomitant]
  6. MIRTAZAPINE [Suspect]
     Indication: DEPRESSION
     Dosage: 15 MG;QD;PO
     Route: 048
     Dates: start: 20100601, end: 20100715

REACTIONS (2)
  - WEIGHT INCREASED [None]
  - LIVER FUNCTION TEST ABNORMAL [None]
